FAERS Safety Report 9241300 (Version 1)
Quarter: 2013Q1

REPORT INFORMATION
  Report Type: Spontaneous
  Country: US (occurrence: None)
  Receive Date: 20121113
  Receipt Date: 20121113
  Transmission Date: 20140127
  Serious: Yes (Hospitalization)
  Sender: FDA-Public Use
  Company Number: PHEH2011US012071

PATIENT
  Age: 19 Year
  Sex: Male

DRUGS (2)
  1. TRILEPTAL [Suspect]
     Dosage: 6QD
  2. DEPAKOTE (VALPROATE SEMISODIUM) [Concomitant]

REACTIONS (1)
  - Convulsion [None]
